FAERS Safety Report 7350292-4 (Version None)
Quarter: 2011Q1

REPORT INFORMATION
  Report Type: 
  Country: None (occurrence: None)
  Receive Date: 20110314
  Receipt Date: 20110303
  Transmission Date: 20110831
  Serious: Yes (Hospitalization)
  Sender: FDA-Public Use
  Company Number: US-ELI_LILLY_AND_COMPANY-US201101006369

PATIENT
  Age: 64 Year
  Sex: Female

DRUGS (6)
  1. ANTIBIOTICS [Concomitant]
  2. CYMBALTA [Suspect]
     Dosage: 20 MG, OTHER
  3. CYMBALTA [Suspect]
     Dosage: 60 MG, UNK
     Dates: start: 20101001
  4. CYMBALTA [Suspect]
     Indication: DEPRESSION
     Dosage: 30 MG, UNKNOWN
  5. MULTIVITAMIN [Concomitant]
  6. CYMBALTA [Suspect]
     Dosage: 30 MG, OTHER

REACTIONS (12)
  - FLAT AFFECT [None]
  - DIZZINESS [None]
  - DISORIENTATION [None]
  - ASTHENIA [None]
  - HALLUCINATION [None]
  - TREMOR [None]
  - VISUAL IMPAIRMENT [None]
  - BLOOD PRESSURE DECREASED [None]
  - BODY TEMPERATURE DECREASED [None]
  - TINNITUS [None]
  - DRUG WITHDRAWAL SYNDROME [None]
  - URINARY TRACT INFECTION [None]
